FAERS Safety Report 8971674 (Version 2)
Quarter: 2012Q4

REPORT INFORMATION
  Report Type: 
  Country: US (occurrence: US)
  Receive Date: 20121217
  Receipt Date: 20121218
  Transmission Date: 20130627
  Serious: Yes (Other)
  Sender: FDA-Public Use
  Company Number: US-JNJFOC-20120911686

PATIENT
  Sex: Female
  Weight: 64.64 kg

DRUGS (4)
  1. XARELTO [Suspect]
     Indication: CEREBROVASCULAR ACCIDENT
     Route: 048
     Dates: start: 201203, end: 20120829
  2. XARELTO [Suspect]
     Indication: ATRIAL FIBRILLATION
     Route: 048
     Dates: start: 201203, end: 20120829
  3. DIOVAN [Concomitant]
     Indication: HYPERTENSION
     Dosage: started 2 and a half to 3 years earlier
  4. CARVEDILOL [Concomitant]
     Indication: HYPERTENSION
     Dosage: started 2 and a half to 3 years earlier

REACTIONS (4)
  - Alanine aminotransferase increased [Recovering/Resolving]
  - Aspartate aminotransferase increased [Recovered/Resolved]
  - Adverse drug reaction [Recovered/Resolved]
  - Cataract [Unknown]
